FAERS Safety Report 5331473-8 (Version None)
Quarter: 2007Q2

REPORT INFORMATION
  Report Type: 
  Country: None (occurrence: None)
  Receive Date: 20070306
  Receipt Date: 20060410
  Transmission Date: 20071010
  Serious: Yes (Hospitalization)
  Sender: FDA-Public Use
  Company Number: A03200602201

PATIENT
  Age: 93 Year
  Sex: Female
  Weight: 58 kg

DRUGS (16)
  1. PLAVIX [Suspect]
     Indication: CORONARY ARTERY DISEASE
     Dosage: 75 MG QD - ORAL
     Route: 048
     Dates: end: 20060328
  2. LOVENOX [Suspect]
     Indication: DEEP VEIN THROMBOSIS
     Dosage: 40 MG ONCE - SUBCUTANEOUS
     Route: 058
     Dates: start: 20060324, end: 20060327
  3. LOVENOX [Suspect]
     Indication: PNEUMONIA
     Dosage: 40 MG ONCE - SUBCUTANEOUS
     Route: 058
     Dates: start: 20060324, end: 20060327
  4. ASPIRIN [Suspect]
     Indication: CORONARY ARTERY DISEASE
     Dosage: ORAL
     Route: 048
  5. METOPROLOL SUCCINATE [Concomitant]
  6. OXYBUTYNIN CHLORIDE [Concomitant]
  7. DONEPEZIL HCL [Concomitant]
  8. GLYCERYL TRINITRATE [Concomitant]
  9. AZITHROMYCIN [Concomitant]
  10. CEFTRIAXONE SODIUM [Concomitant]
  11. POTASSIUM ACETATE [Concomitant]
  12. MOXIFLOXACIN HYDROCHLORIDE [Concomitant]
  13. LISINOPRIL [Concomitant]
  14. MAGNESIUM SULFATE [Concomitant]
  15. SERTRALINE HYDROCHLORIDE [Concomitant]
  16. MEMANTINE HCL [Concomitant]

REACTIONS (3)
  - HAEMATOCRIT DECREASED [None]
  - HAEMOGLOBIN DECREASED [None]
  - RECTAL HAEMORRHAGE [None]
